FAERS Safety Report 12742807 (Version 1)
Quarter: 2016Q3

REPORT INFORMATION
  Report Type: Spontaneous
  Country: US (occurrence: US)
  Receive Date: 20160914
  Receipt Date: 20160914
  Transmission Date: 20161109
  Serious: Yes (Hospitalization)
  Sender: FDA-Public Use
  Company Number: None

PATIENT
  Age: 51 Year
  Sex: Male
  Weight: 130 kg

DRUGS (4)
  1. BEVACIZUMAB (RHUMAB VEGF) [Suspect]
     Active Substance: BEVACIZUMAB
     Dates: end: 20061010
  2. LEUCOVORIN CALCIUM. [Suspect]
     Active Substance: LEUCOVORIN CALCIUM
     Dates: end: 20061010
  3. 5-FLUOROURACIL (5-FU) [Suspect]
     Active Substance: FLUOROURACIL
     Dates: end: 20061010
  4. ELOXATIN [Suspect]
     Active Substance: OXALIPLATIN
     Dates: end: 20061010

REACTIONS (12)
  - Muscle spasms [None]
  - Hyperhidrosis [None]
  - Bacterial test positive [None]
  - Ejection fraction decreased [None]
  - Device related infection [None]
  - Staphylococcus test positive [None]
  - Asthenia [None]
  - White blood cell count decreased [None]
  - Therapy cessation [None]
  - Back pain [None]
  - Device deployment issue [None]
  - Infusion related reaction [None]

NARRATIVE: CASE EVENT DATE: 20061031
